FAERS Safety Report 9265586 (Version 2)
Quarter: 2013Q2

REPORT INFORMATION
  Report Type: Report from Study
  Country: US (occurrence: US)
  Receive Date: 20130501
  Receipt Date: 20130505
  Transmission Date: 20140414
  Serious: Yes (Hospitalization)
  Sender: FDA-Public Use
  Company Number: US-BRISTOL-MYERS SQUIBB COMPANY-18823294

PATIENT
  Age: 80 Year
  Sex: Male
  Weight: 76.19 kg

DRUGS (7)
  1. BLINDED: BYDUREON [Suspect]
     Indication: TYPE 2 DIABETES MELLITUS
     Dosage: LAST DOSE:27NOV2011
     Dates: start: 20110510
  2. BLINDED: PLACEBO [Suspect]
     Indication: TYPE 2 DIABETES MELLITUS
     Dosage: LAST DOSE:27NOV2011
     Dates: start: 20110510
  3. GLIMEPIRIDE [Concomitant]
     Indication: DIABETES MELLITUS
     Dosage: TAB
     Route: 048
     Dates: start: 20110820, end: 20121202
  4. NOVOLOG [Concomitant]
     Indication: DIABETES MELLITUS
     Route: 058
     Dates: start: 20120607, end: 20121124
  5. SIMVASTATIN [Concomitant]
     Indication: HYPERLIPIDAEMIA
     Route: 048
     Dates: start: 20061211, end: 20121202
  6. LASIX [Concomitant]
     Indication: HYPERTENSION
     Route: 048
     Dates: start: 20120227, end: 20121202
  7. ASPIRIN [Concomitant]
     Indication: PROPHYLAXIS
     Route: 048
     Dates: start: 20090521, end: 20121124

REACTIONS (1)
  - Pancreatitis [Recovered/Resolved]
